FAERS Safety Report 21565639 (Version 1)
Quarter: 2022Q4

REPORT INFORMATION
  Report Type: Spontaneous
  Country: US (occurrence: None)
  Receive Date: 20221107
  Receipt Date: 20221107
  Transmission Date: 20230112
  Serious: Yes (Other)
  Sender: FDA-Public Use
  Company Number: None

PATIENT
  Age: 71 Year
  Sex: Female
  Weight: 84.6 kg

DRUGS (3)
  1. BEBTELOVIMAB [Suspect]
     Active Substance: BEBTELOVIMAB
     Indication: COVID-19
     Dosage: OTHER QUANTITY : 1 INJECTION(S);?OTHER FREQUENCY : ONCE;?
     Route: 042
     Dates: start: 20220708, end: 20220708
  2. TUMS [Concomitant]
     Active Substance: CALCIUM CARBONATE
  3. multivitamin-mineral supplement [Concomitant]

REACTIONS (5)
  - Back pain [None]
  - Infusion related reaction [None]
  - Muscle spasms [None]
  - Crying [None]
  - Tension [None]

NARRATIVE: CASE EVENT DATE: 20220711
